FAERS Safety Report 9382396 (Version 4)
Quarter: 2013Q3

REPORT INFORMATION
  Report Type: Spontaneous
  Country: JP (occurrence: JP)
  Receive Date: 20130703
  Receipt Date: 20130919
  Transmission Date: 20140515
  Serious: Yes (Hospitalization)
  Sender: FDA-Public Use
  Company Number: JP-B.I. PHARMACEUTICALS,INC./RIDGEFIELD-2013-BI-18528NB

PATIENT
  Age: 70 Year
  Sex: Male
  Weight: 58 kg

DRUGS (5)
  1. PRAZAXA [Suspect]
     Indication: ATRIAL FIBRILLATION
     Dosage: 220 MG
     Route: 048
     Dates: start: 20130417, end: 20130522
  2. PRAZAXA [Suspect]
     Indication: ATRIAL FLUTTER
  3. CIBENOL [Concomitant]
     Dosage: 300 MG
     Route: 048
     Dates: end: 20130508
  4. MAINTATE [Concomitant]
     Dosage: 5 MG
     Route: 048
  5. BEPRICOR [Concomitant]
     Dosage: 100 MG
     Route: 048
     Dates: start: 20130509, end: 20130517

REACTIONS (2)
  - Atrial flutter [Recovered/Resolved]
  - Liver injury [Recovered/Resolved]
